FAERS Safety Report 9410543 (Version 1)
Quarter: 2013Q3

REPORT INFORMATION
  Report Type: Spontaneous
  Country: US (occurrence: US)
  Receive Date: 20130719
  Receipt Date: 20130719
  Transmission Date: 20140515
  Serious: Yes (Other)
  Sender: FDA-Public Use
  Company Number: US-JNJFOC-20130316196

PATIENT
  Sex: Female
  Weight: 99.79 kg

DRUGS (9)
  1. XARELTO [Suspect]
     Indication: CEREBROVASCULAR ACCIDENT PROPHYLAXIS
     Dosage: STRENGTH: 20 MG
     Route: 048
     Dates: start: 201307
  2. XARELTO [Suspect]
     Indication: CEREBROVASCULAR ACCIDENT PROPHYLAXIS
     Route: 048
     Dates: start: 2013, end: 2013
  3. XARELTO [Suspect]
     Indication: ATRIAL FIBRILLATION
     Route: 048
     Dates: start: 2013, end: 2013
  4. XARELTO [Suspect]
     Indication: ATRIAL FIBRILLATION
     Dosage: STRENGTH: 20 MG
     Route: 048
     Dates: start: 201307
  5. DIURETICS [Concomitant]
     Indication: PRODUCT USED FOR UNKNOWN INDICATION
     Route: 065
  6. HEART PILL [Concomitant]
     Indication: HYPERTENSION
     Route: 065
  7. COREG [Concomitant]
     Indication: HYPERTENSION
     Route: 065
     Dates: start: 2008
  8. HCTZ [Concomitant]
     Indication: DIURETIC THERAPY
     Route: 065
  9. SPIRONOLACTONE [Concomitant]
     Indication: DIURETIC THERAPY
     Route: 065

REACTIONS (2)
  - Skin mass [Not Recovered/Not Resolved]
  - Gingival bleeding [Recovered/Resolved]
